FAERS Safety Report 16495199 (Version 1)
Quarter: 2019Q2

REPORT INFORMATION
  Report Type: Spontaneous
  Country: US (occurrence: US)
  Receive Date: 20190628
  Receipt Date: 20190628
  Transmission Date: 20190711
  Serious: Yes (Hospitalization)
  Sender: FDA-Public Use
  Company Number: US-TEVA-2019-US-1068975

PATIENT
  Sex: Female

DRUGS (1)
  1. VERAPAMIL [Suspect]
     Active Substance: VERAPAMIL HYDROCHLORIDE
     Dosage: EXTENDED RELEASE
     Route: 065
     Dates: start: 2014

REACTIONS (3)
  - Product substitution issue [Unknown]
  - Chest discomfort [Unknown]
  - Palpitations [Unknown]
